FAERS Safety Report 24533984 (Version 1)
Quarter: 2024Q4

REPORT INFORMATION
  Report Type: Spontaneous
  Country: IN (occurrence: IN)
  Receive Date: 20241022
  Receipt Date: 20241022
  Transmission Date: 20250114
  Serious: Yes (Hospitalization)
  Sender: Alora Pharma
  Company Number: IN-ACELLA PHARMACEUTICALS, LLC-2024ALO00490

PATIENT
  Age: 14 Year
  Sex: Male

DRUGS (4)
  1. DEXTROMETHORPHAN [Suspect]
     Active Substance: DEXTROMETHORPHAN
     Indication: Cough
     Dosage: COUGH SYRUP; ARBITRARILY AND EXCESSIVELY
     Route: 048
  2. CHLORPHENIRAMINE MALEATE [Suspect]
     Active Substance: CHLORPHENIRAMINE MALEATE
     Indication: Cough
     Dosage: COUGH SYRUP
     Route: 048
  3. DICHLOROBENZYL ALCOHOL [Suspect]
     Active Substance: DICHLOROBENZYL ALCOHOL
     Indication: Cough
  4. AMYLMETACRESOL [Suspect]
     Active Substance: AMYLMETACRESOL
     Indication: Cough
     Dosage: COUGH LOZENGE
     Route: 048

REACTIONS (3)
  - Overdose [Recovered/Resolved]
  - Toxic leukoencephalopathy [Recovered/Resolved]
  - Serotonin syndrome [Recovered/Resolved]
